FAERS Safety Report 7787602-X (Version None)
Quarter: 2011Q3

REPORT INFORMATION
  Report Type: 
  Country: None (occurrence: None)
  Receive Date: 20110929
  Receipt Date: 20110922
  Transmission Date: 20111222
  Serious: Yes (Other)
  Sender: FDA-Public Use
  Company Number: US-AMGEN-USASP2011007467

PATIENT
  Age: 43 Year
  Sex: Male
  Weight: 64.2 kg

DRUGS (5)
  1. KEPPRA [Concomitant]
     Dosage: 750 MG, Q12H
  2. CORTICOSTEROIDS [Concomitant]
     Indication: IDIOPATHIC THROMBOCYTOPENIC PURPURA
  3. NPLATE [Suspect]
     Indication: IDIOPATHIC THROMBOCYTOPENIC PURPURA
     Dosage: 300 MUG, QWK
     Dates: start: 20110111
  4. IMMUNE GLOBULIN NOS [Concomitant]
     Indication: IDIOPATHIC THROMBOCYTOPENIC PURPURA
  5. KEPPRA [Concomitant]
     Dosage: 1500 MG, Q12H

REACTIONS (6)
  - HEADACHE [None]
  - IDIOPATHIC PULMONARY FIBROSIS [None]
  - TREMOR [None]
  - BURNING SENSATION [None]
  - MUSCULOSKELETAL STIFFNESS [None]
  - PARAESTHESIA [None]
